FAERS Safety Report 12455204 (Version 1)
Quarter: 2016Q2

REPORT INFORMATION
  Report Type: Spontaneous
  Country: US (occurrence: None)
  Receive Date: 20160609
  Receipt Date: 20160609
  Transmission Date: 20160815
  Serious: No
  Sender: FDA-Public Use
  Company Number: None

PATIENT

DRUGS (3)
  1. ZYVOX [Suspect]
     Active Substance: LINEZOLID
  2. DEXTROSE. [Suspect]
     Active Substance: DEXTROSE
  3. LINEZOLID. [Suspect]
     Active Substance: LINEZOLID

REACTIONS (2)
  - Product label confusion [None]
  - Wrong technique in product usage process [None]

NARRATIVE: CASE EVENT DATE: 2016
